FAERS Safety Report 8548348-3 (Version None)
Quarter: 2012Q3

REPORT INFORMATION
  Report Type: 
  Country: None (occurrence: None)
  Receive Date: 20120717
  Receipt Date: 20120702
  Transmission Date: 20120928
  Serious: Yes (Death, Other)
  Sender: FDA-Public Use
  Company Number: 2012MA008161

PATIENT
  Age: 73 Year
  Sex: Male

DRUGS (3)
  1. LIPIODOL (IODIZED OIL) [Suspect]
  2. EPIRUBICIN HYDROCHLORIDE [Suspect]
     Indication: METASTASES TO LIVER
     Dosage: IART
     Route: 013
  3. EPIRUBICIN HYDROCHLORIDE [Suspect]
     Indication: RECTAL CANCER
     Dosage: IART
     Route: 013

REACTIONS (4)
  - METASTASES TO LIVER [None]
  - CONDITION AGGRAVATED [None]
  - METASTASES TO LUNG [None]
  - HEPATIC FAILURE [None]
